FAERS Safety Report 23783255 (Version 1)
Quarter: 2024Q2

REPORT INFORMATION
  Report Type: Spontaneous
  Country: GB (occurrence: GB)
  Receive Date: 20240425
  Receipt Date: 20240425
  Transmission Date: 20240716
  Serious: Yes (Life-Threatening, Hospitalization, Disabling, Other)
  Sender: FDA-Public Use
  Company Number: GB-SUN PHARMACEUTICAL INDUSTRIES LTD-2024RR-439330

PATIENT
  Age: 72 Year
  Sex: Female
  Weight: 44 kg

DRUGS (9)
  1. VALACYCLOVIR [Suspect]
     Active Substance: VALACYCLOVIR HYDROCHLORIDE
     Indication: Herpes zoster
     Dosage: 1000 MG THREE TIMES/DAY; TABLET
     Route: 065
     Dates: start: 20230927
  2. AMITRIPTYLINE [Suspect]
     Active Substance: AMITRIPTYLINE
     Indication: Adverse drug reaction
     Dosage: 10MG ONCE A DAY AT NIGHT; ;
     Route: 065
     Dates: start: 20230929
  3. PROCHLORPERAZINE [Suspect]
     Active Substance: PROCHLORPERAZINE
     Indication: Nausea
     Dosage: 5 MG THREE TIMES A DAY (AS REQUIRED); ;
     Route: 065
     Dates: start: 20230929
  4. AMLODIPINE [Concomitant]
     Active Substance: AMLODIPINE BESYLATE
     Indication: Hypertension
     Dosage: UNK
     Route: 065
  5. GABAPENTIN [Concomitant]
     Active Substance: GABAPENTIN
     Indication: Product used for unknown indication
     Dosage: UNK
     Route: 065
  6. ONEALFA [Concomitant]
     Active Substance: ALFACALCIDOL
     Indication: Adverse drug reaction
     Dosage: UNK
     Route: 065
  7. ASCORBIC ACID\BIOTIN\CALCIUM PANTOTHENATE\CYANOCOBALAMIN\FOLIC ACID\NI [Concomitant]
     Active Substance: ASCORBIC ACID\BIOTIN\CALCIUM PANTOTHENATE\CYANOCOBALAMIN\FOLIC ACID\NIACINAMIDE\PYRIDOXINE HYDROCHLO
     Indication: Adverse drug reaction
     Dosage: UNK
     Route: 065
  8. TINZAPARIN [Concomitant]
     Active Substance: TINZAPARIN
     Indication: Adverse drug reaction
     Dosage: UNK
     Route: 065
  9. VITAMIN D SUBSTANCES [Concomitant]
     Indication: Adverse drug reaction
     Dosage: UNK
     Route: 065

REACTIONS (2)
  - Medication error [Unknown]
  - Cognitive disorder [Recovered/Resolved with Sequelae]

NARRATIVE: CASE EVENT DATE: 20230928
